FAERS Safety Report 7742435-5 (Version None)
Quarter: 2011Q3

REPORT INFORMATION
  Report Type: 
  Country: None (occurrence: None)
  Receive Date: 20110912
  Receipt Date: 20110829
  Transmission Date: 20111222
  Serious: Yes (Other)
  Sender: FDA-Public Use
  Company Number: DE-MYLANLABS-2011S1017951

PATIENT
  Age: 40 Year
  Sex: Female
  Weight: 53 kg

DRUGS (1)
  1. CARBIDOPA + LEVODOPA [Suspect]
     Indication: RESTLESS LEGS SYNDROME
     Dosage: 200 [MG/D ] / 50 [MG/D ]
     Route: 048
     Dates: start: 20100504, end: 20100511

REACTIONS (3)
  - ABORTION SPONTANEOUS [None]
  - MATERNAL EXPOSURE DURING PREGNANCY [None]
  - DRUG INEFFECTIVE [None]
